FAERS Safety Report 5356797-X (Version None)
Quarter: 2007Q2

REPORT INFORMATION
  Report Type: 
  Country: None (occurrence: None)
  Receive Date: 20070614
  Receipt Date: 20060328
  Transmission Date: 20071010
  Serious: No
  Sender: FDA-Public Use
  Company Number: US-ASTRAZENECA-2006UW05435

PATIENT
  Age: 67 Year
  Sex: Female
  Weight: 66.2 kg

DRUGS (2)
  1. ATACAND [Suspect]
     Indication: HYPERTENSION
     Route: 048
     Dates: start: 20060330
  2. TOPROL-XL [Concomitant]

REACTIONS (2)
  - DIZZINESS [None]
  - DYSURIA [None]
